FAERS Safety Report 9928118 (Version 1)
Quarter: 2014Q1

REPORT INFORMATION
  Report Type: Spontaneous
  Country: US (occurrence: None)
  Receive Date: 20140226
  Receipt Date: 20140226
  Transmission Date: 20141002
  Serious: Yes (Other)
  Sender: FDA-Public Use
  Company Number: None

PATIENT
  Age: 56 Year
  Sex: Female
  Weight: 54.43 kg

DRUGS (2)
  1. AZITHROMYCIN 250MG [Suspect]
     Indication: SINUSITIS
     Dosage: 6 PILLS ONCE DAILY TAKEN BY MOUTH
     Route: 048
  2. AZITHROMYCIN 250MG [Suspect]
     Indication: BACTERIAL INFECTION
     Dosage: 6 PILLS ONCE DAILY TAKEN BY MOUTH
     Route: 048

REACTIONS (1)
  - Abdominal pain upper [None]
